FAERS Safety Report 21258802 (Version 1)
Quarter: 2022Q3

REPORT INFORMATION
  Report Type: Spontaneous
  Country: US (occurrence: US)
  Receive Date: 20220826
  Receipt Date: 20220826
  Transmission Date: 20221027
  Serious: Yes (Other)
  Sender: FDA-Public Use
  Company Number: US-PFIZER INC-202201093596

PATIENT
  Age: 35 Year
  Sex: Female

DRUGS (1)
  1. XELJANZ XR [Suspect]
     Active Substance: TOFACITINIB CITRATE
     Dosage: 11 MG, 1X/DAY
     Route: 048
     Dates: start: 20210121

REACTIONS (4)
  - Haematochezia [Unknown]
  - Product dose omission issue [Unknown]
  - Diarrhoea [Unknown]
  - Colonoscopy [Unknown]

NARRATIVE: CASE EVENT DATE: 20220201
